FAERS Safety Report 13727007 (Version 1)
Quarter: 2017Q3

REPORT INFORMATION
  Report Type: Spontaneous
  Country: DE (occurrence: DE)
  Receive Date: 20170707
  Receipt Date: 20170707
  Transmission Date: 20171127
  Serious: Yes (Other)
  Sender: FDA-Public Use
  Company Number: DE-AUROBINDO-AUR-APL-2017-36861

PATIENT
  Sex: Female
  Weight: 87 kg

DRUGS (7)
  1. FOLIO FORTE [Concomitant]
     Active Substance: FOLIC ACID\VITAMINS
     Indication: PROPHYLAXIS OF NEURAL TUBE DEFECT
     Dosage: 0.8 MG, ONCE A DAY
     Route: 048
     Dates: start: 20160507, end: 20170204
  2. HUMALOG MIX50/50 [Concomitant]
     Active Substance: INSULIN LISPRO
     Indication: GESTATIONAL DIABETES
     Dosage: 28 IU, DAILY, [IE/D (0-0-28)
     Route: 058
     Dates: start: 20161201, end: 20170204
  3. L-THYROX [Concomitant]
     Active Substance: LEVOTHYROXINE SODIUM
     Indication: HYPOTHYROIDISM
     Dosage: 75 ?G, ONCE A DAY, (75 [?G/D (1-0-0)
     Route: 048
  4. OLANZAPINE. [Suspect]
     Active Substance: OLANZAPINE
     Indication: ANXIETY DISORDER
     Dosage: 5 MG, ONCE A DAY
     Route: 048
     Dates: start: 20160507, end: 20170204
  5. VENLAFAXINE [Suspect]
     Active Substance: VENLAFAXINE HYDROCHLORIDE
     Indication: DEPRESSION
     Dosage: 75 MG, ONCE A DAY
     Route: 048
     Dates: start: 20160507, end: 20170204
  6. HUMALOG [Concomitant]
     Active Substance: INSULIN LISPRO
     Indication: GESTATIONAL DIABETES
     Dosage: 24 UNK, [LE/D (14-10?0)
     Route: 058
     Dates: start: 20161123, end: 20170204
  7. LANTUS [Concomitant]
     Active Substance: INSULIN GLARGINE
     Indication: GESTATIONAL DIABETES
     Dosage: 34 IU, ONCE A DAY,( 34 [IE/D(0-0-0-34)
     Route: 058
     Dates: start: 20161206, end: 20170204

REACTIONS (2)
  - Gestational diabetes [Recovered/Resolved]
  - Exposure during pregnancy [Unknown]
